FAERS Safety Report 25717550 (Version 1)
Quarter: 2025Q3

REPORT INFORMATION
  Report Type: Spontaneous
  Country: US (occurrence: US)
  Receive Date: 20250822
  Receipt Date: 20250822
  Transmission Date: 20251021
  Serious: Yes (Death, Other)
  Sender: AMGEN
  Company Number: US-AMGEN-USASP2025161752

PATIENT

DRUGS (2)
  1. RITUXIMAB [Suspect]
     Active Substance: RITUXIMAB
     Indication: Immunosuppressant drug therapy
     Route: 065
  2. INFLIXIMAB [Suspect]
     Active Substance: INFLIXIMAB
     Indication: Immunosuppressant drug therapy
     Route: 065

REACTIONS (6)
  - Death [Fatal]
  - Ventricular tachycardia [Unknown]
  - Ventricular fibrillation [Unknown]
  - Cardiac failure [Unknown]
  - Cardiac sarcoidosis [Unknown]
  - Ventricular extrasystoles [Unknown]
